FAERS Safety Report 11806956 (Version 3)
Quarter: 2016Q3

REPORT INFORMATION
  Report Type: Spontaneous
  Country: US (occurrence: US)
  Receive Date: 20151207
  Receipt Date: 20160805
  Transmission Date: 20161109
  Serious: Yes (Other)
  Sender: FDA-Public Use
  Company Number: US-PFIZER INC-2015424814

PATIENT
  Age: 71 Year
  Sex: Female

DRUGS (8)
  1. SIMVASTATIN. [Concomitant]
     Active Substance: SIMVASTATIN
     Indication: BLOOD CHOLESTEROL
     Dosage: 5 MG, DAILY
  2. CENTRUM MULTIVITAMIN [Concomitant]
     Dosage: UNK
  3. TURMERIC [Concomitant]
     Active Substance: TURMERIC
     Dosage: UNK
     Dates: end: 20151120
  4. CALCIUM D [Concomitant]
     Active Substance: CALCIUM\VITAMIN D
     Dosage: UNK (CALCIUM 1000MG; D 500MG)
  5. EVISTA [Concomitant]
     Active Substance: RALOXIFENE HYDROCHLORIDE
     Indication: OSTEOPOROSIS
     Dosage: 60 MG, DAILY
  6. XELJANZ [Suspect]
     Active Substance: TOFACITINIB CITRATE
     Indication: RHEUMATOID ARTHRITIS
     Dosage: 5 MG, 2X/DAY
     Dates: start: 20150615
  7. VITAMIN D [Concomitant]
     Active Substance: CHOLECALCIFEROL
     Dosage: 1000 MG, DAILY
  8. BYSTOLIC [Concomitant]
     Active Substance: NEBIVOLOL HYDROCHLORIDE
     Indication: BLOOD PRESSURE MEASUREMENT
     Dosage: 2.5 MG, DAILY

REACTIONS (3)
  - Diarrhoea [Recovered/Resolved]
  - Oropharyngeal pain [Unknown]
  - Haematochezia [Recovered/Resolved]

NARRATIVE: CASE EVENT DATE: 20151118
